FAERS Safety Report 5083352-1 (Version None)
Quarter: 2006Q3

REPORT INFORMATION
  Report Type: 
  Country: None (occurrence: None)
  Receive Date: 20060818
  Receipt Date: 20060809
  Transmission Date: 20061208
  Serious: Yes (Death, Other)
  Sender: FDA-Public Use
  Company Number: US-JNJFOC-20060505783

PATIENT
  Sex: Female

DRUGS (1)
  1. REMICADE [Suspect]
     Indication: RHEUMATOID ARTHRITIS
     Route: 042

REACTIONS (5)
  - GLOMERULONEPHRITIS [None]
  - PULMONARY HAEMORRHAGE [None]
  - PULMONARY VASCULITIS [None]
  - RENAL VASCULITIS [None]
  - VASCULITIS [None]
